FAERS Safety Report 12494241 (Version 2)
Quarter: 2017Q1

REPORT INFORMATION
  Report Type: Spontaneous
  Country: AU (occurrence: AU)
  Receive Date: 20160623
  Receipt Date: 20170308
  Transmission Date: 20170428
  Serious: Yes (Death, Congenital Anomaly)
  Sender: FDA-Public Use
  Company Number: PHHY2016AU086377

PATIENT

DRUGS (5)
  1. VITAMIN B6 [Concomitant]
     Active Substance: PYRIDOXINE HYDROCHLORIDE
     Indication: FOETAL EXPOSURE DURING PREGNANCY
     Route: 064
  2. ZOFRAN [Suspect]
     Active Substance: ONDANSETRON HYDROCHLORIDE
     Indication: FOETAL EXPOSURE DURING PREGNANCY
     Dosage: UNK (MATERNAL DOSE: 2 MG TWICE DAILY FOR 6 WEEKS)
     Route: 064
  3. ELEVIT                             /01730301/ [Concomitant]
     Active Substance: FOLIC ACID\IRON\MINERALS\VITAMINS
     Indication: FOETAL EXPOSURE DURING PREGNANCY
     Route: 064
  4. RESTAVIT [Concomitant]
     Indication: FOETAL EXPOSURE DURING PREGNANCY
     Route: 064
  5. ZOFRAN [Suspect]
     Active Substance: ONDANSETRON HYDROCHLORIDE
     Dosage: UNK (MATERNAL DOSE: 4 MG BID)
     Route: 064

REACTIONS (5)
  - Heart valve incompetence [Unknown]
  - Atrial septal defect [Fatal]
  - Hypoplastic left heart syndrome [Fatal]
  - Foetal exposure during pregnancy [Fatal]
  - Ventricular septal defect [Fatal]
